FAERS Safety Report 22005840 (Version 1)
Quarter: 2023Q1

REPORT INFORMATION
  Report Type: Spontaneous
  Country: US (occurrence: None)
  Receive Date: 20230216
  Receipt Date: 20230216
  Transmission Date: 20230417
  Serious: No
  Sender: FDA-Public Use
  Company Number: None

PATIENT
  Age: 34 Year
  Sex: Female

DRUGS (1)
  1. AIMOVIG [Suspect]
     Active Substance: ERENUMAB-AOOE
     Indication: Migraine
     Dosage: 70 MG Q MONTH SUB Q
     Route: 058
     Dates: start: 20230117, end: 20230117

REACTIONS (1)
  - Rash [None]

NARRATIVE: CASE EVENT DATE: 20230131
